FAERS Safety Report 14964457 (Version 1)
Quarter: 2018Q2

REPORT INFORMATION
  Report Type: Spontaneous
  Country: ES (occurrence: ES)
  Receive Date: 20180601
  Receipt Date: 20180601
  Transmission Date: 20180711
  Serious: Yes (Hospitalization)
  Sender: FDA-Public Use
  Company Number: ES-BAUSCH-BL-2018-015699

PATIENT
  Age: 74 Year
  Sex: Male

DRUGS (3)
  1. ENALAPRIL CINFA [Suspect]
     Active Substance: ENALAPRIL
     Indication: HYPERTENSION
     Dosage: 5 MG IN 24 HOURS (10 MG TABLET, 56 TABLETS)
     Route: 048
     Dates: start: 20171218
  2. METFORMINA [Suspect]
     Active Substance: METFORMIN HYDROCHLORIDE
     Indication: DIABETES MELLITUS
     Route: 048
     Dates: start: 20171219, end: 20180123
  3. ENALAPRIL CINFA [Suspect]
     Active Substance: ENALAPRIL
     Dosage: REDUCED DOSE
     Route: 048
     Dates: start: 201801

REACTIONS (2)
  - Diarrhoea [Recovered/Resolved]
  - Acute kidney injury [Recovered/Resolved]

NARRATIVE: CASE EVENT DATE: 20180115
